FAERS Safety Report 25462604 (Version 2)
Quarter: 2025Q3

REPORT INFORMATION
  Report Type: Spontaneous
  Country: US (occurrence: US)
  Receive Date: 20250620
  Receipt Date: 20250714
  Transmission Date: 20251021
  Serious: No
  Sender: PFIZER
  Company Number: US-PFIZER INC-202500123445

PATIENT
  Age: 32 Year
  Sex: Male

DRUGS (18)
  1. HEPARIN SODIUM [Suspect]
     Active Substance: HEPARIN SODIUM
     Dosage: UNK, 1X/DAY, 12 UNITS/KG/HR (25000 UNITS/500 ML)
     Route: 042
     Dates: start: 20250612, end: 20250612
  2. HEPARIN SODIUM [Suspect]
     Active Substance: HEPARIN SODIUM
     Dosage: UNK, 1X/DAY, 28 UNITS/KG/HR (25000 UNITS/500 ML)
     Route: 042
     Dates: start: 20250613, end: 20250613
  3. ASPIRIN [Concomitant]
     Active Substance: ASPIRIN
     Dosage: 81 MG, 1X/DAY
     Route: 048
     Dates: start: 20250612, end: 20250612
  4. ASPIRIN [Concomitant]
     Active Substance: ASPIRIN
     Dosage: 324 MG, 1X/DAY (4 TABSX 81 MG)
     Route: 048
     Dates: start: 20250612, end: 20250612
  5. CEFTRIAXONE [Concomitant]
     Active Substance: CEFTRIAXONE
     Dosage: 1 G, 1X/DAY (EVERY 24 HOURS)
     Route: 042
     Dates: start: 20250610, end: 20250611
  6. DEXAMETHASONE [Concomitant]
     Active Substance: DEXAMETHASONE
     Indication: Nausea
     Route: 042
     Dates: start: 20250610, end: 20250611
  7. DOCUSATE SODIUM\SENNOSIDE A\SENNOSIDE B [Concomitant]
     Active Substance: DOCUSATE SODIUM\SENNOSIDE A\SENNOSIDE B
     Indication: Constipation
     Route: 048
     Dates: start: 20250610, end: 20250611
  8. HEPARIN [Concomitant]
     Active Substance: HEPARIN SODIUM
     Dosage: UNK, 1X/DAY (3000 UNITS/ 0.6 ML)
     Route: 042
     Dates: start: 20250612, end: 20250612
  9. HEPARIN [Concomitant]
     Active Substance: HEPARIN SODIUM
     Route: 058
     Dates: start: 20250611, end: 20250612
  10. HYDROMORPHONE [Concomitant]
     Active Substance: HYDROMORPHONE
     Indication: Pain
     Route: 042
     Dates: start: 20250610, end: 20250611
  11. LACTATED RINGERS SOLUTION [Concomitant]
     Active Substance: CALCIUM CHLORIDE\POTASSIUM CHLORIDE\SODIUM CHLORIDE\SODIUM LACTATE
     Route: 042
     Dates: start: 20250610, end: 20250611
  12. LACTATED RINGERS SOLUTION [Concomitant]
     Active Substance: CALCIUM CHLORIDE\POTASSIUM CHLORIDE\SODIUM CHLORIDE\SODIUM LACTATE
     Route: 042
     Dates: start: 20250611, end: 20250613
  13. MORPHINE [Concomitant]
     Active Substance: MORPHINE
     Indication: Pain
     Route: 042
     Dates: start: 20250610, end: 20250612
  14. PIPERACILLIN AND TAZOBACTAM [Concomitant]
     Active Substance: PIPERACILLIN SODIUM\TAZOBACTAM SODIUM
     Route: 042
     Dates: start: 20250611, end: 20250611
  15. POLYETHYLENE GLYCOL 3350 [Concomitant]
     Active Substance: POLYETHYLENE GLYCOL 3350
     Route: 048
     Dates: start: 20250610, end: 20250612
  16. IOHEXOL [Concomitant]
     Active Substance: IOHEXOL
     Route: 042
     Dates: start: 20250612, end: 20250612
  17. SODIUM CHLORIDE [Concomitant]
     Active Substance: SODIUM CHLORIDE
     Dates: start: 20250611, end: 20250611
  18. STERILE WATER [Concomitant]
     Active Substance: WATER
     Dates: start: 20250611, end: 20250611

REACTIONS (1)
  - Drug ineffective [Unknown]

NARRATIVE: CASE EVENT DATE: 20250601
